FAERS Safety Report 6370789-3 (Version None)
Quarter: 2009Q3

REPORT INFORMATION
  Report Type: 
  Country: None (occurrence: None)
  Receive Date: 20090923
  Receipt Date: 20061102
  Transmission Date: 20100115
  Serious: No
  Sender: FDA-Public Use
  Company Number: US-ASTRAZENECA-2006UW24842

PATIENT
  Age: 13532 Day
  Sex: Male
  Weight: 114.3 kg

DRUGS (20)
  1. SEROQUEL [Suspect]
     Indication: DEPRESSION
     Dosage: 100 MG, 200 MG, 300 MG
     Route: 048
     Dates: start: 20050906, end: 20051004
  2. SEROQUEL [Suspect]
     Indication: ANXIETY
     Dosage: 100 MG, 200 MG, 300 MG
     Route: 048
     Dates: start: 20050906, end: 20051004
  3. SEROQUEL [Suspect]
     Dosage: 100MG-300MG
     Route: 048
     Dates: start: 20050906
  4. SEROQUEL [Suspect]
     Dosage: 100MG-300MG
     Route: 048
     Dates: start: 20050906
  5. LANTUS [Concomitant]
     Dosage: 10-24 UNITS
     Route: 058
  6. METFORMIN HCL [Concomitant]
     Dosage: 500-1000 MG
     Route: 048
  7. AMITRIPTYLINE [Concomitant]
     Dosage: 25-150 MG
     Route: 048
     Dates: start: 20060717
  8. CHLORPHENIRAMINE MALEATE [Concomitant]
     Route: 048
  9. ATORVASTATIN [Concomitant]
     Route: 048
  10. TRAZODONE [Concomitant]
     Dosage: 100-200 MG
     Route: 048
  11. SILVER SULFADIAZINE [Concomitant]
     Dosage: 0.1 %, TWO TIMES AS PER NEEDED
     Route: 061
  12. DICLOFENAC [Concomitant]
     Route: 065
  13. FLUOXETINE [Concomitant]
     Route: 048
  14. ACETAMINOPHEN [Concomitant]
     Dosage: 325-100 MG
     Route: 048
  15. GLIMEPIRIDE [Concomitant]
     Route: 048
  16. GLIMEPIRIDE [Concomitant]
     Dosage: 2-8 MG
     Route: 048
     Dates: start: 20051206
  17. BUSPIRONE HCL [Concomitant]
     Route: 048
  18. MIRTAZAPINE [Concomitant]
     Route: 048
  19. CLONAZEPAM [Concomitant]
     Dosage: 0.5-2 MG
     Route: 048
  20. IBUPROFEN [Concomitant]
     Route: 048

REACTIONS (8)
  - DEPRESSION [None]
  - DIABETES MELLITUS [None]
  - HYPERCHOLESTEROLAEMIA [None]
  - HYPERKERATOSIS [None]
  - MALAISE [None]
  - OTITIS MEDIA [None]
  - RHINITIS ALLERGIC [None]
  - UPPER RESPIRATORY TRACT INFECTION [None]
